FAERS Safety Report 10594788 (Version 1)
Quarter: 2014Q4

REPORT INFORMATION
  Report Type: Spontaneous
  Country: CN (occurrence: CN)
  Receive Date: 20141120
  Receipt Date: 20141120
  Transmission Date: 20150529
  Serious: Yes (Other)
  Sender: FDA-Public Use
  Company Number: CN-ROCHE-1491113

PATIENT
  Sex: Male
  Weight: 73 kg

DRUGS (7)
  1. DEZOCINE [Suspect]
     Active Substance: DEZOCINE
     Indication: PAIN
     Route: 041
     Dates: start: 20140420, end: 20140421
  2. ROCEPHIN [Suspect]
     Active Substance: CEFTRIAXONE SODIUM
     Indication: WOUND INFECTION
     Route: 041
     Dates: start: 20140421, end: 20140424
  3. TEICOPLANIN [Suspect]
     Active Substance: TEICOPLANIN
     Indication: WOUND INFECTION
     Route: 041
     Dates: start: 20140421, end: 20140424
  4. SALVIANOLATE [Suspect]
     Active Substance: HERBALS
     Indication: PRODUCT USED FOR UNKNOWN INDICATION
     Route: 041
     Dates: start: 20140425, end: 20140428
  5. ORNIDAZOLE [Concomitant]
     Active Substance: ORNIDAZOLE
     Indication: INFECTION
     Route: 041
     Dates: start: 20140420, end: 20140425
  6. CEFOXITIN SODIUM [Suspect]
     Active Substance: CEFOXITIN SODIUM
     Indication: INFECTION
     Route: 041
     Dates: start: 20140425, end: 20140428
  7. NEXIUM [Suspect]
     Active Substance: ESOMEPRAZOLE MAGNESIUM
     Indication: PROPHYLAXIS AGAINST GASTROINTESTINAL ULCER
     Route: 041
     Dates: start: 20140420, end: 20140425

REACTIONS (1)
  - Hepatocellular injury [Recovering/Resolving]
